FAERS Safety Report 9703418 (Version 1)
Quarter: 2013Q4

REPORT INFORMATION
  Report Type: Spontaneous
  Country: US (occurrence: US)
  Receive Date: 20131122
  Receipt Date: 20131122
  Transmission Date: 20140711
  Serious: Yes (Other)
  Sender: FDA-Public Use
  Company Number: US-ASTRAZENECA-2013SE85089

PATIENT
  Sex: Female

DRUGS (2)
  1. NEXIUM [Suspect]
     Indication: GASTROOESOPHAGEAL REFLUX DISEASE
     Route: 048
     Dates: start: 20060425, end: 20130929
  2. NEXIUM [Suspect]
     Indication: GASTROOESOPHAGEAL REFLUX DISEASE
     Route: 048

REACTIONS (63)
  - Myelodysplastic syndrome [Unknown]
  - Osteoporosis [Unknown]
  - Anaemia vitamin B12 deficiency [Unknown]
  - Anxiety [Unknown]
  - Activities of daily living impaired [Unknown]
  - Asthenia [Unknown]
  - Apathy [Unknown]
  - Decreased appetite [Unknown]
  - Hypertension [Unknown]
  - Contusion [Unknown]
  - Chills [Unknown]
  - Amnesia [Unknown]
  - Productive cough [Unknown]
  - Sneezing [Unknown]
  - Fatigue [Unknown]
  - Hirsutism [Unknown]
  - Dissociative fugue [Unknown]
  - Peripheral coldness [Unknown]
  - Deafness [Unknown]
  - Muscle spasms [Unknown]
  - Metabolic disorder [Unknown]
  - Fall [Unknown]
  - Multiple fractures [Unknown]
  - Pallor [Unknown]
  - Weight decreased [Unknown]
  - Yawning [Unknown]
  - Hypersomnia [Unknown]
  - Skin disorder [Unknown]
  - Abdominal distension [Unknown]
  - Breast swelling [Unknown]
  - Urine odour abnormal [Unknown]
  - Epistaxis [Unknown]
  - Jaw fracture [Unknown]
  - Tendon injury [Unknown]
  - Joint injury [Unknown]
  - Upper limb fracture [Unknown]
  - Disturbance in attention [Unknown]
  - Eye irritation [Unknown]
  - Tremor [Unknown]
  - Wheezing [Unknown]
  - Thirst [Unknown]
  - False positive investigation result [Unknown]
  - Glossitis [Unknown]
  - Dyspnoea [Unknown]
  - Concussion [Unknown]
  - Depression [Unknown]
  - Diarrhoea [Unknown]
  - Confusional state [Unknown]
  - Nausea [Unknown]
  - Dizziness [Unknown]
  - Face oedema [Unknown]
  - Headache [Unknown]
  - Flatulence [Unknown]
  - Alopecia [Unknown]
  - Paraesthesia oral [Unknown]
  - Stomatitis [Unknown]
  - Vertigo [Unknown]
  - Rash maculo-papular [Unknown]
  - Hyperhidrosis [Unknown]
  - Ageusia [Unknown]
  - Dry mouth [Unknown]
  - Vision blurred [Unknown]
  - Oedema peripheral [Unknown]
